FAERS Safety Report 17539361 (Version 1)
Quarter: 2020Q1

REPORT INFORMATION
  Report Type: Spontaneous
  Country: US (occurrence: US)
  Receive Date: 20200313
  Receipt Date: 20200313
  Transmission Date: 20200409
  Serious: Yes (Hospitalization)
  Sender: FDA-Public Use
  Company Number: None

PATIENT
  Sex: Female

DRUGS (13)
  1. ESCITALOPRAM [Concomitant]
     Active Substance: ESCITALOPRAM OXALATE
  2. FLUPHENAZINE [Concomitant]
     Active Substance: FLUPHENAZINE
  3. VITAMIN D [Concomitant]
     Active Substance: VITAMIN D NOS
  4. RANITIDINE. [Concomitant]
     Active Substance: RANITIDINE
  5. FLUTICASONE. [Concomitant]
     Active Substance: FLUTICASONE
  6. CYCLOBENZAPRINE. [Concomitant]
     Active Substance: CYCLOBENZAPRINE
  7. MELOXICAM. [Concomitant]
     Active Substance: MELOXICAM
  8. NEXIUM [Concomitant]
     Active Substance: ESOMEPRAZOLE MAGNESIUM
  9. NITROFUR [Concomitant]
     Active Substance: NITROFURANTOIN
  10. RISPERIDONE. [Concomitant]
     Active Substance: RISPERIDONE
  11. ZYRTEC [Concomitant]
     Active Substance: CETIRIZINE HYDROCHLORIDE
  12. PRALUENT [Suspect]
     Active Substance: ALIROCUMAB
     Indication: TYPE V HYPERLIPIDAEMIA
     Dosage: ?          OTHER FREQUENCY:EVERY 2 WEEKS;?
     Route: 058
     Dates: start: 20180628
  13. MECLIZINE [Concomitant]
     Active Substance: MECLIZINE HYDROCHLORIDE

REACTIONS (2)
  - Bladder disorder [None]
  - Muscle spasms [None]
